FAERS Safety Report 8990632 (Version 2)
Quarter: 2013Q1

REPORT INFORMATION
  Report Type: Spontaneous
  Country: GB (occurrence: GB)
  Receive Date: 20121228
  Receipt Date: 20130129
  Transmission Date: 20140127
  Serious: Yes (Hospitalization, Other)
  Sender: FDA-Public Use
  Company Number: GB-AMGEN-IRLSP2012082720

PATIENT
  Age: 71 Year
  Sex: Female
  Weight: 53.4 kg

DRUGS (1)
  1. PROLIA [Suspect]
     Indication: PRODUCT USED FOR UNKNOWN INDICATION
     Dosage: 60 MG, Q6MO
     Route: 058
     Dates: start: 201208, end: 201208

REACTIONS (2)
  - Renal failure chronic [Unknown]
  - Hypocalcaemia [Recovered/Resolved]
